FAERS Safety Report 8429160-2 (Version None)
Quarter: 2012Q2

REPORT INFORMATION
  Report Type: 
  Country: None (occurrence: None)
  Receive Date: 20120612
  Receipt Date: 20120606
  Transmission Date: 20120825
  Serious: Yes (Hospitalization, Other)
  Sender: FDA-Public Use
  Company Number: US-SANOFI-AVENTIS-2012SA036126

PATIENT
  Sex: Male
  Weight: 102.27 kg

DRUGS (8)
  1. METFORMIN HCL [Concomitant]
     Dosage: 2 IN THE MORNING, 1 IN THE NIGHT
  2. LANTUS [Suspect]
     Dosage: DOSE:80 UNIT(S)
     Route: 058
     Dates: start: 20120516, end: 20120520
  3. LANTUS [Suspect]
     Dosage: DOSE:80 UNIT(S)
     Route: 058
     Dates: start: 20040101
  4. METOPROLOL TARTRATE [Concomitant]
     Dosage: 1 IN THE MORNING, 1 IN THE NIGHT
  5. ASPIRIN [Concomitant]
     Dates: start: 20020101
  6. SIMVASTATIN [Concomitant]
  7. GLYBURIDE [Concomitant]
     Dosage: 2 IN THE MORNING, 1 IN THE NIGHT
  8. LISINOPRIL [Concomitant]

REACTIONS (5)
  - DRUG INEFFECTIVE [None]
  - CARDIAC FAILURE CONGESTIVE [None]
  - BLOOD GLUCOSE INCREASED [None]
  - DIZZINESS [None]
  - LOSS OF CONSCIOUSNESS [None]
